FAERS Safety Report 4468078-7 (Version None)
Quarter: 2004Q4

REPORT INFORMATION
  Report Type: 
  Country: None (occurrence: None)
  Receive Date: 20041004
  Receipt Date: 20040920
  Transmission Date: 20050328
  Serious: Yes (Hospitalization, Other)
  Sender: FDA-Public Use
  Company Number: 200420568BWH

PATIENT
  Age: 45 Year
  Sex: Female

DRUGS (6)
  1. CIPRO [Suspect]
     Dosage: ORAL
     Route: 048
     Dates: start: 20040725, end: 20040817
  2. METHYLCELLULOSE [Suspect]
     Dosage: ORAL
     Route: 048
     Dates: start: 20040601
  3. FLUOXETINE HYDROCHLORIDE [Concomitant]
  4. ALPRAZOLAM [Concomitant]
  5. HYDROXYZINE [Concomitant]
  6. CETIRIZINE HCL [Concomitant]

REACTIONS (9)
  - DIPLOPIA [None]
  - DISEASE RECURRENCE [None]
  - DIZZINESS [None]
  - DYSPNOEA [None]
  - FUNGAL INFECTION [None]
  - GINGIVAL CYST [None]
  - NAUSEA [None]
  - OVARIAN CYST [None]
  - TREMOR [None]
